FAERS Safety Report 10141581 (Version 1)
Quarter: 2014Q2

REPORT INFORMATION
  Report Type: Report from Study
  Country: US (occurrence: US)
  Receive Date: 20140429
  Receipt Date: 20140429
  Transmission Date: 20141212
  Serious: No
  Sender: FDA-Public Use
  Company Number: US-ALEXION-A201202731

PATIENT
  Age: 69 Year
  Sex: Male

DRUGS (2)
  1. SOLIRIS [Suspect]
     Indication: HAEMOLYTIC URAEMIC SYNDROME
     Dosage: UNK
     Route: 042
     Dates: end: 20120518
  2. SOLIRIS [Suspect]
     Dosage: UNK
     Route: 042
     Dates: start: 20120523

REACTIONS (1)
  - Blood creatinine increased [Recovered/Resolved]
